FAERS Safety Report 8532057 (Version 2)
Quarter: 2013Q3

REPORT INFORMATION
  Report Type: Report from Study
  Country: DE (occurrence: DE)
  Receive Date: 20120426
  Receipt Date: 20130828
  Transmission Date: 20140515
  Serious: Yes (Hospitalization, Other)
  Sender: FDA-Public Use
  Company Number: DE-ROCHE-1060941

PATIENT
  Sex: 0

DRUGS (2)
  1. PEG-INTERFERON ALFA 2A [Suspect]
     Indication: CHRONIC HEPATITIS C
     Route: 058
  2. RIBAVIRIN [Suspect]
     Indication: CHRONIC HEPATITIS C
     Dosage: DOSE: WEIGHT-BASED DOSAGE OF RIBAVIRIN 800 MG-1200 MG
     Route: 065

REACTIONS (6)
  - Sepsis [Unknown]
  - Pneumonia [Unknown]
  - Portal vein thrombosis [Unknown]
  - Hepatic failure [Unknown]
  - Ascites [Unknown]
  - Hepatic encephalopathy [Unknown]
